FAERS Safety Report 9171397 (Version 1)
Quarter: 2013Q1

REPORT INFORMATION
  Report Type: Spontaneous
  Country: US (occurrence: US)
  Receive Date: 20130319
  Receipt Date: 20130319
  Transmission Date: 20140127
  Serious: No
  Sender: FDA-Public Use
  Company Number: US-MYLANLABS-2012S1003387

PATIENT
  Age: 55 Year
  Sex: Female

DRUGS (3)
  1. DICLOFENAC SODIUM DELAYED RELEASE [Suspect]
     Indication: PAIN
     Route: 048
     Dates: start: 201109, end: 20120207
  2. DICLOFENAC SODIUM DELAYED RELEASE [Suspect]
     Indication: PAIN
     Route: 048
     Dates: start: 20120210
  3. AMLODIPINE BESYLATE\BENAZEPRIL HYDROCHLORIDE [Concomitant]
     Indication: BLOOD PRESSURE INCREASED
     Route: 048

REACTIONS (1)
  - Dysgeusia [Not Recovered/Not Resolved]
